FAERS Safety Report 20868704 (Version 1)
Quarter: 2022Q2

REPORT INFORMATION
  Report Type: Spontaneous
  Country: PT (occurrence: None)
  Receive Date: 20220524
  Receipt Date: 20220524
  Transmission Date: 20220721
  Serious: Yes (Other)
  Sender: FDA-Public Use
  Company Number: PT-Merck Healthcare KGaA-9324098

PATIENT
  Age: 78 Year
  Sex: Male

DRUGS (3)
  1. AVELUMAB [Suspect]
     Active Substance: AVELUMAB
     Indication: Transitional cell carcinoma
     Dosage: 800 (UNSPECIFIED UNIT)
  2. CARBOPLATIN [Concomitant]
     Active Substance: CARBOPLATIN
     Indication: Transitional cell carcinoma
  3. GEMCITABINE [Concomitant]
     Active Substance: GEMCITABINE
     Indication: Transitional cell carcinoma

REACTIONS (2)
  - Disease progression [Unknown]
  - Off label use [Unknown]
